FAERS Safety Report 8366743-2 (Version None)
Quarter: 2012Q2

REPORT INFORMATION
  Report Type: 
  Country: None (occurrence: None)
  Receive Date: 20120517
  Receipt Date: 20120511
  Transmission Date: 20120825
  Serious: Yes (Other)
  Sender: FDA-Public Use
  Company Number: AR-AMGEN-ARGCT2012029984

PATIENT
  Age: 49 Year

DRUGS (1)
  1. DENOSUMAB [Suspect]
     Indication: BREAST CANCER

REACTIONS (1)
  - EXPOSED BONE IN JAW [None]
